FAERS Safety Report 5259454-3 (Version None)
Quarter: 2007Q1

REPORT INFORMATION
  Report Type: 
  Country: None (occurrence: None)
  Receive Date: 20070305
  Receipt Date: 20070216
  Transmission Date: 20070707
  Serious: Yes (Hospitalization)
  Sender: FDA-Public Use
  Company Number: US 2007 0001

PATIENT
  Age: 47 Year
  Sex: Female
  Weight: 83.4619 kg

DRUGS (2)
  1. OXILAN-300 [Suspect]
     Indication: HAEMATURIA
     Dosage: 100CC 2/8
  2. OXILAN-300 [Suspect]
     Indication: UROGRAM
     Dosage: 100CC 2/8

REACTIONS (10)
  - CONVULSION [None]
  - DIZZINESS [None]
  - DYSARTHRIA [None]
  - DYSPHEMIA [None]
  - DYSPNOEA [None]
  - HEADACHE [None]
  - HEMIPARESIS [None]
  - RASH [None]
  - URTICARIA [None]
  - VOMITING [None]
